FAERS Safety Report 20748593 (Version 2)
Quarter: 2022Q2

REPORT INFORMATION
  Report Type: Report from Study
  Country: EG (occurrence: EG)
  Receive Date: 20220426
  Receipt Date: 20220521
  Transmission Date: 20220721
  Serious: Yes (Other)
  Sender: FDA-Public Use
  Company Number: EG-NOVARTISPH-NVSC2022EG094789

PATIENT
  Age: 8 Year
  Sex: Female

DRUGS (4)
  1. OMNITROPE [Suspect]
     Active Substance: SOMATROPIN
     Indication: Growth hormone deficiency
     Dosage: 0.4 MG, QD
     Route: 065
     Dates: start: 201908
  2. ZINC [Concomitant]
     Active Substance: ZINC
     Indication: Mineral supplementation
     Dosage: 3 ML, QD
     Route: 065
     Dates: start: 202012, end: 202109
  3. ZINC [Concomitant]
     Active Substance: ZINC
     Dosage: 3 ML, Q2W
     Route: 065
  4. IRON [Concomitant]
     Active Substance: IRON
     Indication: Mineral supplementation
     Dosage: 3 OR 5 ML, QD
     Route: 065
     Dates: start: 201908, end: 202012

REACTIONS (2)
  - Crying [Not Recovered/Not Resolved]
  - Injection site pain [Not Recovered/Not Resolved]

NARRATIVE: CASE EVENT DATE: 20220401
